FAERS Safety Report 8243459-4 (Version None)
Quarter: 2012Q1

REPORT INFORMATION
  Report Type: 
  Country: None (occurrence: None)
  Receive Date: 20120326
  Receipt Date: 20120319
  Transmission Date: 20120608
  Serious: No
  Sender: FDA-Public Use
  Company Number: US-COVIDIEN/TYCO HEALTHCARE/MALLINCKRODT-T201201009

PATIENT
  Sex: Female
  Weight: 110.66 kg

DRUGS (15)
  1. EXALGO [Suspect]
     Dosage: 16 MG, ONE TABLET Q 4 HOURS
     Dates: start: 20120305
  2. HYDROCODONE BITARTRATE AND ACETAMINOPHEN [Concomitant]
     Indication: PAIN
     Dosage: 10/650 MG; 8 A DAY
     Route: 048
  3. METHADONE HCL [Concomitant]
     Indication: PAIN
     Dosage: 10 MG, QD
     Route: 048
  4. PLAVIX [Concomitant]
     Indication: HYPERTENSION
     Dosage: UNK
     Route: 048
  5. NEXIUM [Concomitant]
     Indication: GASTROOESOPHAGEAL REFLUX DISEASE
     Dosage: UNK
     Route: 048
  6. OXYCODONE HCL [Concomitant]
     Indication: PAIN
     Dosage: 5 MG, QID
     Route: 048
  7. HUMALOG [Concomitant]
     Indication: DIABETES MELLITUS
     Dosage: UNK
  8. MAGNESIUM [Concomitant]
     Indication: SUPPLEMENTATION THERAPY
     Dosage: 800 U, UNK
     Route: 048
  9. CLONIDINE [Concomitant]
     Indication: HYPERTENSION
     Dosage: UNK
     Route: 048
  10. EFFEXOR [Concomitant]
     Indication: DEPRESSION
     Dosage: 150 MG, UNK
     Route: 048
  11. OPANA [Concomitant]
     Indication: PAIN
     Dosage: 40 MG, EVERY 4 HOURS
     Route: 048
     Dates: end: 20120301
  12. OPANA [Concomitant]
     Dosage: 30 MG, EVERY 8 HOURS
     Dates: end: 20120301
  13. LANTUS [Concomitant]
     Indication: DIABETES MELLITUS
     Dosage: UNK
  14. EXALGO [Suspect]
     Indication: PAIN
     Dosage: 16 MG, 6 TABLETS IN THE AM
     Route: 048
     Dates: start: 20120302, end: 20120304
  15. FOLIC ACID [Concomitant]
     Indication: VITAMIN SUPPLEMENTATION
     Dosage: 850 U, UNK
     Route: 048

REACTIONS (3)
  - NAUSEA [None]
  - INAPPROPRIATE SCHEDULE OF DRUG ADMINISTRATION [None]
  - SOMNOLENCE [None]
